FAERS Safety Report 7971437-9 (Version None)
Quarter: 2011Q4

REPORT INFORMATION
  Report Type: 
  Country: None (occurrence: None)
  Receive Date: 20111212
  Receipt Date: 20111207
  Transmission Date: 20120403
  Serious: No
  Sender: FDA-Public Use
  Company Number: US-PFIZER INC-2011299088

PATIENT
  Sex: Female
  Weight: 58.05 kg

DRUGS (5)
  1. ACETYLSALICYLIC ACID [Concomitant]
     Indication: HEADACHE
     Dosage: UNK, AS NEEDED
  2. IBUPROFEN (ADVIL) [Suspect]
     Indication: PAIN IN EXTREMITY
     Dosage: 400 MG, 2X/DAY
     Route: 048
     Dates: start: 20111130, end: 20111206
  3. TRIAMTERENE AND HYDROCHLOROTHIAZIDE [Concomitant]
     Indication: HYPERTENSION
     Dosage: UNK
  4. LEXAPRO [Concomitant]
     Indication: DEPRESSION
     Dosage: UNK
  5. SYNTHROID [Concomitant]
     Indication: HYPERTHYROIDISM
     Dosage: UNK

REACTIONS (1)
  - URTICARIA [None]
